FAERS Safety Report 8102077-9 (Version None)
Quarter: 2012Q1

REPORT INFORMATION
  Report Type: 
  Country: None (occurrence: None)
  Receive Date: 20120131
  Receipt Date: 20120125
  Transmission Date: 20120608
  Serious: Yes (Hospitalization, Other)
  Sender: FDA-Public Use
  Company Number: US-MERCK-1108USA01928

PATIENT
  Age: 62 Year
  Sex: Female
  Weight: 60 kg

DRUGS (6)
  1. PREMPRO [Concomitant]
     Indication: OSTEOPOROSIS PROPHYLAXIS
     Route: 065
     Dates: start: 20000101, end: 20070101
  2. FOSAMAX [Suspect]
     Route: 048
     Dates: start: 19980117
  3. FOSAMAX [Suspect]
     Route: 048
     Dates: start: 20030601, end: 20070701
  4. FOSAMAX [Suspect]
     Route: 048
     Dates: start: 20030601, end: 20070701
  5. FOSAMAX [Suspect]
     Indication: OSTEOPENIA
     Route: 048
     Dates: start: 19981117, end: 20020501
  6. FOSAMAX [Suspect]
     Indication: OSTEOPOROSIS
     Route: 048
     Dates: start: 19981117, end: 20020501

REACTIONS (47)
  - BUNION [None]
  - FRACTURE NONUNION [None]
  - FALL [None]
  - JOINT CREPITATION [None]
  - GLAUCOMA [None]
  - DENTAL CARIES [None]
  - INTERVERTEBRAL DISC DEGENERATION [None]
  - HAEMORRHAGIC ANAEMIA [None]
  - FOOT FRACTURE [None]
  - BURSITIS [None]
  - PERIPHERAL VASCULAR DISORDER [None]
  - SYNOVIAL RUPTURE [None]
  - SQUAMOUS CELL CARCINOMA [None]
  - VAGINAL DISORDER [None]
  - RIB FRACTURE [None]
  - BLOOD MAGNESIUM DECREASED [None]
  - GASTROOESOPHAGEAL REFLUX DISEASE [None]
  - SPINAL DISORDER [None]
  - TEMPOROMANDIBULAR JOINT SYNDROME [None]
  - PEPTIC ULCER [None]
  - CAROTID ARTERY STENOSIS [None]
  - LOSS OF ANATOMICAL ALIGNMENT AFTER FRACTURE REDUCTION [None]
  - HYPERLIPIDAEMIA [None]
  - INTERVERTEBRAL DISC DISORDER [None]
  - FEMUR FRACTURE [None]
  - HAEMATURIA [None]
  - CYST [None]
  - HYPERTENSION [None]
  - GOUT [None]
  - OBESITY [None]
  - DUODENAL ULCER [None]
  - ARRHYTHMIA [None]
  - ALOPECIA [None]
  - CHRONIC OBSTRUCTIVE PULMONARY DISEASE [None]
  - HYPOTHYROIDISM [None]
  - TOOTH FRACTURE [None]
  - SPINAL COMPRESSION FRACTURE [None]
  - RHINITIS ALLERGIC [None]
  - OSTEOARTHRITIS [None]
  - MEDICAL DEVICE COMPLICATION [None]
  - ASTHENIA [None]
  - AORTIC CALCIFICATION [None]
  - HELICOBACTER INFECTION [None]
  - SEBORRHOEIC KERATOSIS [None]
  - MONARTHRITIS [None]
  - LYMPHADENITIS [None]
  - BRONCHITIS CHRONIC [None]
